FAERS Safety Report 5816209-6 (Version None)
Quarter: 2008Q3

REPORT INFORMATION
  Report Type: 
  Country: None (occurrence: None)
  Receive Date: 20080721
  Receipt Date: 20080710
  Transmission Date: 20090109
  Serious: Yes (Life-Threatening)
  Sender: FDA-Public Use
  Company Number: B0528868A

PATIENT
  Age: 81 Year
  Sex: Male

DRUGS (3)
  1. ARIXTRA [Suspect]
     Indication: THROMBOSIS PROPHYLAXIS
     Dosage: 2.5MG PER DAY
     Route: 058
     Dates: start: 20080708, end: 20080709
  2. MODOPAR [Concomitant]
     Indication: PARKINSON'S DISEASE
     Route: 065
  3. PROFENID [Concomitant]
     Indication: DRUG USE FOR UNKNOWN INDICATION
     Dosage: 50MG FIVE TIMES PER DAY
     Route: 048
     Dates: start: 20080708, end: 20080708

REACTIONS (4)
  - CEREBRAL HAEMORRHAGE [None]
  - COMA [None]
  - EXTRADURAL HAEMATOMA [None]
  - FALL [None]
